FAERS Safety Report 25158323 (Version 2)
Quarter: 2025Q2

REPORT INFORMATION
  Report Type: Spontaneous
  Country: US (occurrence: US)
  Receive Date: 20250404
  Receipt Date: 20250623
  Transmission Date: 20250716
  Serious: Yes (Death, Hospitalization, Other)
  Sender: GRAVITI PHARMACEUTICALS PRIVATE LIMITED
  Company Number: US-GRAVITIPHARMA-GRA-2503-US-LIT-0201

PATIENT
  Age: 20 Year
  Sex: Female

DRUGS (1)
  1. AMLODIPINE [Suspect]
     Active Substance: AMLODIPINE BESYLATE
     Indication: Product used for unknown indication
     Route: 048

REACTIONS (12)
  - Cardiac arrest [Fatal]
  - Cardiac failure high output [Unknown]
  - Hypoxia [Unknown]
  - Pulmonary oedema [Unknown]
  - Multiple organ dysfunction syndrome [Unknown]
  - Renal failure [Unknown]
  - Vasoplegia syndrome [Unknown]
  - Generalised oedema [Unknown]
  - Hypotension [Unknown]
  - Somnolence [Unknown]
  - Toxicity to various agents [Unknown]
  - Overdose [Unknown]
